FAERS Safety Report 7221745-4 (Version None)
Quarter: 2011Q1

REPORT INFORMATION
  Report Type: 
  Country: None (occurrence: None)
  Receive Date: 20110111
  Receipt Date: 20101004
  Transmission Date: 20110831
  Serious: No
  Sender: FDA-Public Use
  Company Number: DL2010-0803

PATIENT
  Age: 23 Year
  Sex: Female

DRUGS (3)
  1. MIFEPRISTONE (MIFEPREX) [Suspect]
     Indication: ABORTION INDUCED
     Dosage: 200 MG, ORAL
     Route: 048
     Dates: start: 20100903
  2. MISOPROSTOL [Suspect]
     Dosage: 800 MCG, BUCCAL
     Route: 002
     Dates: start: 20100904
  3. DOXYCYCLINE [Concomitant]

REACTIONS (4)
  - VAGINITIS BACTERIAL [None]
  - INFECTION [None]
  - VOMITING [None]
  - DIARRHOEA [None]
